FAERS Safety Report 10166752 (Version 1)
Quarter: 2014Q2

REPORT INFORMATION
  Report Type: Spontaneous
  Country: US (occurrence: None)
  Receive Date: 20140509
  Receipt Date: 20140509
  Transmission Date: 20141212
  Serious: Yes (Hospitalization)
  Sender: FDA-Public Use
  Company Number: UTC-048092

PATIENT
  Age: 75 Year
  Sex: Male

DRUGS (1)
  1. TYVASO (0.6 MILLIGRAM/ MILLILITERS, AEROSOL FOR INHALATION) (TREPROSTINIL SODIUM) [Suspect]
     Indication: PULMONARY ARTERIAL HYPERTENSION
     Route: 055
     Dates: start: 20140304

REACTIONS (3)
  - Peripheral swelling [None]
  - Joint swelling [None]
  - Peripheral swelling [None]
